FAERS Safety Report 15901966 (Version 3)
Quarter: 2019Q1

REPORT INFORMATION
  Report Type: Spontaneous
  Country: ES (occurrence: ES)
  Receive Date: 20190201
  Receipt Date: 20190207
  Transmission Date: 20190417
  Serious: No
  Sender: FDA-Public Use
  Company Number: ES-009507513-1902ESP000351

PATIENT
  Age: 35 Year
  Sex: Female

DRUGS (2)
  1. TIMOLOL MALEATE. [Suspect]
     Active Substance: TIMOLOL MALEATE
     Indication: IRIDOCORNEAL ENDOTHELIAL SYNDROME
     Dosage: UNK
     Route: 047
  2. DORZOLAMIDE HYDROCHLORIDE. [Suspect]
     Active Substance: DORZOLAMIDE HYDROCHLORIDE
     Indication: IRIDOCORNEAL ENDOTHELIAL SYNDROME
     Dosage: UNK
     Route: 047

REACTIONS (1)
  - Drug ineffective [Unknown]
